FAERS Safety Report 24109326 (Version 1)
Quarter: 2024Q3

REPORT INFORMATION
  Report Type: Spontaneous
  Country: US (occurrence: None)
  Receive Date: 20240717
  Receipt Date: 20240717
  Transmission Date: 20241017
  Serious: Yes (Hospitalization)
  Sender: Public
  Company Number: None

PATIENT
  Sex: Female
  Weight: 77.11 kg

DRUGS (3)
  1. FLUOROURACIL [Suspect]
     Active Substance: FLUOROURACIL
  2. IRINOTECAN SUCROSOFATE [Concomitant]
     Active Substance: IRINOTECAN SUCROSOFATE
  3. LEUCOVORIN CALCIUM [Concomitant]

REACTIONS (8)
  - Dyspnoea [None]
  - Asthenia [None]
  - Oedema peripheral [None]
  - Blood pressure decreased [None]
  - Heart rate increased [None]
  - Urinary retention [None]
  - Blood lactic acid increased [None]
  - Fluid retention [None]

NARRATIVE: CASE EVENT DATE: 20230827
